FAERS Safety Report 4952262-X (Version None)
Quarter: 2006Q1

REPORT INFORMATION
  Report Type: 
  Country: None (occurrence: None)
  Receive Date: 20060320
  Receipt Date: 20060224
  Transmission Date: 20060701
  Serious: Yes (Other)
  Sender: FDA-Public Use
  Company Number: THYM-10894

PATIENT

DRUGS (3)
  1. THYMOGLOBULIN [Suspect]
     Indication: RENAL TRANSPLANT
     Dosage: 1.25 MG/KG ONCE IV
     Route: 042
     Dates: start: 20060223, end: 20060223
  2. CELLCEPT [Concomitant]
  3. STEROIDS [Concomitant]

REACTIONS (4)
  - CYTOKINE RELEASE SYNDROME [None]
  - HYPERTENSION [None]
  - PULMONARY OEDEMA [None]
  - TACHYCARDIA [None]
